FAERS Safety Report 20526035 (Version 1)
Quarter: 2022Q1

REPORT INFORMATION
  Report Type: Spontaneous
  Country: US (occurrence: US)
  Receive Date: 20220228
  Receipt Date: 20220228
  Transmission Date: 20220423
  Serious: No
  Sender: FDA-Public Use
  Company Number: US-PHARMING-PHAUS2022000149

PATIENT

DRUGS (1)
  1. RUCONEST [Suspect]
     Active Substance: HUMAN C1-ESTERASE INHIBITOR
     Indication: Prophylaxis
     Dosage: 850 IU, THE NIGHT BEFORE THE PROCEDURE AND 30-60 MINUTES BEFORE THE PROCEDURE

REACTIONS (1)
  - Product use in unapproved indication [Unknown]
